FAERS Safety Report 23218176 (Version 1)
Quarter: 2023Q4

REPORT INFORMATION
  Report Type: Report from Study
  Country: US (occurrence: US)
  Receive Date: 20231122
  Receipt Date: 20231122
  Transmission Date: 20240110
  Serious: Yes (Hospitalization)
  Sender: FDA-Public Use
  Company Number: US-PFIZER INC-PV202300184993

PATIENT
  Age: 69 Year
  Sex: Female
  Weight: 67 kg

DRUGS (3)
  1. BINIMETINIB [Suspect]
     Active Substance: BINIMETINIB
     Indication: Breast cancer
     Dosage: 45 MG, 2X/DAY
     Route: 048
     Dates: start: 20230720, end: 20231107
  2. AVELUMAB [Suspect]
     Active Substance: AVELUMAB
     Indication: Breast cancer
     Dosage: 720 MG (10 MG/KG), CYCLIC (EVERY 2 WEEKS)
     Route: 042
     Dates: start: 20230804
  3. DOXIL [Suspect]
     Active Substance: DOXORUBICIN HYDROCHLORIDE
     Indication: Breast cancer
     Dosage: 56.7 MG (30 MG/M2), CYCLIC (EVERY 4 WEEKS)
     Route: 042
     Dates: start: 20231006

REACTIONS (1)
  - Respiratory failure [Recovered/Resolved]

NARRATIVE: CASE EVENT DATE: 20231107
